FAERS Safety Report 5884215-1 (Version None)
Quarter: 2008Q3

REPORT INFORMATION
  Report Type: 
  Country: None (occurrence: None)
  Receive Date: 20080915
  Receipt Date: 20080723
  Transmission Date: 20090109
  Serious: Yes (Other)
  Sender: FDA-Public Use
  Company Number: US-PURDUE-USA_2008_0034557

PATIENT
  Sex: Female

DRUGS (6)
  1. OXYCONTIN [Suspect]
     Indication: INTERVERTEBRAL DISC PROTRUSION
     Dosage: 80 MG, TID
     Dates: start: 19990101
  2. CELEBREX [Concomitant]
     Dosage: 150 MG, UNK
  3. LORTAB [Concomitant]
     Dosage: 10 MG, UNK
  4. CYMBALTA [Concomitant]
     Dosage: 60 MG, UNK
  5. FLEXERIL [Concomitant]
     Dosage: 3 TABLET, DAILY
  6. CELEX [Concomitant]

REACTIONS (13)
  - ALOPECIA [None]
  - AMNESIA [None]
  - CRYING [None]
  - DRUG DEPENDENCE [None]
  - DRY MOUTH [None]
  - GAIT DISTURBANCE [None]
  - HYPOPHAGIA [None]
  - NERVOUSNESS [None]
  - NIGHT SWEATS [None]
  - OEDEMA PERIPHERAL [None]
  - PAIN [None]
  - SUICIDAL IDEATION [None]
  - TREMOR [None]
